FAERS Safety Report 7156106-X (Version None)
Quarter: 2010Q4

REPORT INFORMATION
  Report Type: 
  Country: None (occurrence: None)
  Receive Date: 20101123
  Receipt Date: 20100916
  Transmission Date: 20110411
  Serious: Yes (Other)
  Sender: FDA-Public Use
  Company Number: 018940

PATIENT
  Sex: Female

DRUGS (1)
  1. CIMZIA [Suspect]
     Dosage: 400 MG 1X/MONTH SUBCUTANEOUS
     Route: 058

REACTIONS (4)
  - ABDOMINAL DISTENSION [None]
  - CARDIAC FAILURE [None]
  - OEDEMA PERIPHERAL [None]
  - WEIGHT INCREASED [None]
